FAERS Safety Report 26057620 (Version 1)
Quarter: 2025Q4

REPORT INFORMATION
  Report Type: Spontaneous
  Country: US (occurrence: None)
  Receive Date: 20251118
  Receipt Date: 20251118
  Transmission Date: 20260117
  Serious: Yes (Other)
  Sender: UCB
  Company Number: US-UCBSA-2025025380

PATIENT
  Age: 75 Year
  Weight: 50.9 kg

DRUGS (9)
  1. VIMPAT [Suspect]
     Active Substance: LACOSAMIDE
     Indication: Seizure
     Dosage: 50 MG IN THE MORNING AND 100 MG AT NIGHT
  2. DILANTIN [Concomitant]
     Active Substance: PHENYTOIN
     Indication: Seizure
     Dosage: UNK
  3. diciofenac [Concomitant]
     Indication: Arthralgia
     Dosage: 6 GRAM, ONCE DAILY (QD)
  4. OMEGA-3 FATTY ACIDS [Concomitant]
     Active Substance: OMEGA-3 FATTY ACIDS
     Indication: Product used for unknown indication
     Dosage: 300 MILLIGRAM 4 TIMES
  5. FISH OIL [Concomitant]
     Active Substance: FISH OIL
     Indication: Product used for unknown indication
     Dosage: 100 MILLIGRAM, 3X/DAY (TID)
  6. PANTOPRAZOLE [Concomitant]
     Active Substance: PANTOPRAZOLE
     Indication: Product used for unknown indication
     Dosage: 40 MILLIGRAM, ONCE DAILY (QD)
  7. PROBIOTICS NOS [Concomitant]
     Active Substance: PROBIOTICS NOS
     Indication: Product used for unknown indication
     Dosage: UNK
  8. TURMERIC PO [Concomitant]
     Indication: Product used for unknown indication
  9. WORIVIWOOD,ARTEMISIA ABSINTHIUM [Concomitant]
     Indication: Product used for unknown indication
     Dosage: 4 TIMES DAILY

REACTIONS (1)
  - Seizure [Unknown]
